FAERS Safety Report 9469719 (Version 1)
Quarter: 2013Q3

REPORT INFORMATION
  Report Type: Spontaneous
  Country: US (occurrence: None)
  Receive Date: 20130820
  Receipt Date: 20130820
  Transmission Date: 20140515
  Serious: Yes (Other)
  Sender: FDA-Public Use
  Company Number: None

PATIENT
  Age: 19 Year
  Sex: Male

DRUGS (1)
  1. PERCOCET [Suspect]
     Indication: BACK PAIN
     Dosage: 10/325 PO 1Q4H
     Route: 048
     Dates: start: 20121008

REACTIONS (4)
  - Nausea [None]
  - Constipation [None]
  - Pruritus [None]
  - Product substitution issue [None]
